FAERS Safety Report 7206239-4 (Version None)
Quarter: 2010Q4

REPORT INFORMATION
  Report Type: 
  Country: None (occurrence: None)
  Receive Date: 20101217
  Receipt Date: 20101210
  Transmission Date: 20110411
  Serious: Yes (Other)
  Sender: FDA-Public Use
  Company Number: TRP_07451_2010

PATIENT
  Age: 24 Year
  Sex: Female

DRUGS (3)
  1. RIBAVIRIN [Suspect]
     Indication: HEPATITIS C
     Dosage: 1000 MG, DAILY ORAL, 1000 MG, DAILY ORAL
     Route: 048
  2. PEGINTERFERON ALFA-2A [Suspect]
     Indication: HEPATITIS C
     Dosage: 180 ?G 1XWEEK SUBCUTANEOUS; 180 ?G 1X/WEEK SUBCUTANEOUS
     Route: 058
  3. SILIBININ (SILIBININ) [Suspect]
     Indication: HEPATITIS C
     Dosage: 20 MG/KG PER DAY FOR 16 WEEKS INTRAVENOUS (NOT OTHERWISE SPECIFIED)
     Route: 042

REACTIONS (8)
  - ALOPECIA [None]
  - DECREASED APPETITE [None]
  - DEPRESSION [None]
  - INFLUENZA LIKE ILLNESS [None]
  - NO THERAPEUTIC RESPONSE [None]
  - PANIC ATTACK [None]
  - VERTIGO [None]
  - WEIGHT DECREASED [None]
